FAERS Safety Report 23091520 (Version 2)
Quarter: 2023Q4

REPORT INFORMATION
  Report Type: Spontaneous
  Country: US (occurrence: US)
  Receive Date: 20231020
  Receipt Date: 20231222
  Transmission Date: 20240110
  Serious: Yes (Other)
  Sender: FDA-Public Use
  Company Number: US-BEH-2023164503

PATIENT
  Age: 19 Year
  Sex: Female
  Weight: 122.45 kg

DRUGS (5)
  1. HAEGARDA [Suspect]
     Active Substance: HUMAN C1-ESTERASE INHIBITOR
     Indication: Hereditary angioedema
     Dosage: 7000 INTERNATIONAL UNIT, BIW
     Route: 058
     Dates: start: 202307
  2. HAEGARDA [Suspect]
     Active Substance: HUMAN C1-ESTERASE INHIBITOR
     Indication: Prophylaxis
     Dosage: 8000 INTERNATIONAL UNIT, BIW
     Route: 058
     Dates: start: 202307
  3. HAEGARDA [Suspect]
     Active Substance: HUMAN C1-ESTERASE INHIBITOR
     Indication: Hereditary angioedema
     Dosage: 7000 INTERNATIONAL UNIT, BIW
     Route: 058
     Dates: start: 202307
  4. HAEGARDA [Suspect]
     Active Substance: HUMAN C1-ESTERASE INHIBITOR
     Indication: Prophylaxis
     Dosage: 8000 INTERNATIONAL UNIT, BIW
     Route: 058
     Dates: start: 202307
  5. EPINEPHRINE [Concomitant]
     Active Substance: EPINEPHRINE
     Dosage: UNK

REACTIONS (11)
  - Hereditary angioedema [Recovered/Resolved]
  - Injection site swelling [Unknown]
  - Wrong technique in product usage process [Unknown]
  - Adhesive tape use [Unknown]
  - Injection site bruising [Unknown]
  - Incorrect drug administration rate [Unknown]
  - Hereditary angioedema [Unknown]
  - Ill-defined disorder [Unknown]
  - No adverse event [Unknown]
  - Product dose omission issue [Unknown]
  - Weight increased [Unknown]

NARRATIVE: CASE EVENT DATE: 20231001
